FAERS Safety Report 8590369 (Version 3)
Quarter: 2012Q4

REPORT INFORMATION
  Report Type: 
  Country: CA (occurrence: CA)
  Receive Date: 20120601
  Receipt Date: 20121009
  Transmission Date: 20130627
  Serious: Yes (Hospitalization, Other)
  Sender: FDA-Public Use
  Company Number: PHHY2012CA044979

PATIENT
  Age: 70 Year
  Sex: Male
  Weight: 72 kg

DRUGS (2)
  1. AMIODARONE HCL FOR INJ [Suspect]
     Indication: VENTRICULAR TACHYCARDIA
     Dosage: 1 mg/min i.v for 6 hrs
     Route: 042
     Dates: start: 20120522, end: 20120522
  2. AMIODARONE HCL FOR INJ [Suspect]
     Indication: ACUTE MYOCARDIAL INFARCTION
     Dosage: 0.5 mg/min for 18 hrs
     Route: 042

REACTIONS (10)
  - Thrombophlebitis [Recovered/Resolved]
  - Injection site erythema [Recovered/Resolved]
  - Injection site warmth [Recovered/Resolved]
  - Pain [Recovered/Resolved]
  - Infusion site extravasation [Recovered/Resolved]
  - Injection site pain [Recovered/Resolved]
  - Thrombosis [Recovered/Resolved]
  - Vein disorder [Recovered/Resolved]
  - White blood cell count decreased [Recovered/Resolved]
  - Subclavian vein thrombosis [None]
